FAERS Safety Report 24286292 (Version 1)
Quarter: 2024Q3

REPORT INFORMATION
  Report Type: Spontaneous
  Country: FR (occurrence: FR)
  Receive Date: 20240905
  Receipt Date: 20240905
  Transmission Date: 20241017
  Serious: Yes (Other)
  Sender: CHEPLAPHARM
  Company Number: None

PATIENT
  Age: 72 Year
  Sex: Female
  Weight: 54 kg

DRUGS (4)
  1. CAPECITABINE [Suspect]
     Active Substance: CAPECITABINE
     Indication: Adenocarcinoma of colon
     Dosage: 500 MG X 6/D 14D/21D/3000 MG?DAILY DOSE: 6 DOSAGE FORM
     Route: 048
     Dates: start: 20231205
  2. CAPECITABINE [Suspect]
     Active Substance: CAPECITABINE
     Indication: Adenocarcinoma of colon
     Dosage: REDUCTION IN THE DOSAGE OF XELODA TO 5 TABLETS 5X/DAY ?DAILY DOSE: 5 DOSAGE FORM
     Route: 048
     Dates: start: 20240430
  3. LORAZEPAM [Concomitant]
     Active Substance: LORAZEPAM
  4. LERCANIDIPINE [Concomitant]
     Active Substance: LERCANIDIPINE

REACTIONS (4)
  - Retinal vein occlusion [Not Recovered/Not Resolved]
  - Skin toxicity [Unknown]
  - Asthenia [Unknown]
  - Drug intolerance [Unknown]

NARRATIVE: CASE EVENT DATE: 20240525
